FAERS Safety Report 9296180 (Version 1)
Quarter: 2013Q2

REPORT INFORMATION
  Report Type: Report from Study
  Country: JP (occurrence: JP)
  Receive Date: 20130517
  Receipt Date: 20130517
  Transmission Date: 20140414
  Serious: Yes (Death, Hospitalization, Other)
  Sender: FDA-Public Use
  Company Number: JP-ACTELION-A-JP2007-15030

PATIENT
  Age: 39 Year
  Sex: Female
  Weight: 50 kg

DRUGS (23)
  1. TRACLEER [Suspect]
     Indication: PULMONARY ARTERIAL HYPERTENSION
     Dosage: 62.5 MG, BID
     Route: 048
     Dates: start: 20060331, end: 20060523
  2. TRACLEER [Suspect]
     Dosage: 62.5 MG, QD
     Route: 048
     Dates: start: 20060224, end: 20060312
  3. TRACLEER [Suspect]
     Dosage: 62.5 MG, BID
     Route: 048
     Dates: start: 20060313, end: 20060326
  4. TRACLEER [Suspect]
     Dosage: UNK UNK, BID
     Route: 048
     Dates: start: 20060327, end: 20060330
  5. TRACLEER [Suspect]
     Dosage: 93.75 MG, BID
     Route: 048
     Dates: start: 20060524, end: 20060530
  6. TRACLEER [Suspect]
     Dosage: 125 MG, BID
     Route: 048
     Dates: start: 20060531, end: 20060905
  7. EPOPROSTENOL SODIUM [Concomitant]
  8. DOBUTAMINE HYDROCHLORIDE [Suspect]
     Indication: RIGHT VENTRICULAR FAILURE
     Dosage: UNK
     Route: 041
     Dates: start: 20060210, end: 20060905
  9. CEFAZOLIN SODIUM [Suspect]
     Indication: THROMBOPHLEBITIS
     Dosage: 2 G, QD
     Route: 042
     Dates: start: 20060707, end: 20060711
  10. FUROSEMIDE [Concomitant]
  11. SPIRONOLACTONE [Concomitant]
  12. POTASSIUM GLUCONATE [Concomitant]
  13. FERROUS CITRATE [Concomitant]
  14. ASCORBIC ACID [Concomitant]
  15. CALCIUM PANTOTHENATE [Concomitant]
  16. THIAMAZOLE [Concomitant]
  17. BROMHEXINE HYDROCHLORIDE [Concomitant]
  18. DEXTROMETHORPHAN HYDROBROMIDE [Concomitant]
  19. DIGOXIN [Concomitant]
  20. MINOCYCLINE HYDROCHLORIDE [Concomitant]
  21. LANSOPRAZOLE [Concomitant]
  22. REBAMIPIDE [Concomitant]
  23. OXYGEN [Concomitant]

REACTIONS (10)
  - Right ventricular failure [Fatal]
  - Concomitant disease aggravated [Fatal]
  - Pseudomembranous colitis [Recovered/Resolved]
  - Gamma-glutamyltransferase increased [Not Recovered/Not Resolved]
  - Thrombophlebitis [Not Recovered/Not Resolved]
  - Liver function test abnormal [Recovering/Resolving]
  - Aspartate aminotransferase increased [Recovering/Resolving]
  - Alanine aminotransferase increased [Recovering/Resolving]
  - Device related infection [Not Recovered/Not Resolved]
  - Haemoptysis [Recovered/Resolved]
